FAERS Safety Report 5930155-9 (Version None)
Quarter: 2008Q4

REPORT INFORMATION
  Report Type: 
  Country: None (occurrence: None)
  Receive Date: 20081009
  Receipt Date: 20080211
  Transmission Date: 20090506
  Serious: Yes (Other)
  Sender: FDA-Public Use
  Company Number: PHEH2008US01761

PATIENT
  Sex: Female

DRUGS (1)
  1. ZOMETA [Suspect]
     Indication: METASTASES TO BONE
     Dosage: Q 6 WEEKS, INFUSION
     Dates: start: 20040101, end: 20080101

REACTIONS (2)
  - BLOOD CREATININE INCREASED [None]
  - RASH PRURITIC [None]
